FAERS Safety Report 4936733-8 (Version None)
Quarter: 2006Q1

REPORT INFORMATION
  Report Type: 
  Country: None (occurrence: None)
  Receive Date: 20060302
  Receipt Date: 20060215
  Transmission Date: 20060701
  Serious: No
  Sender: FDA-Public Use
  Company Number: GB200602003154

PATIENT
  Age: 17 Year
  Sex: Male

DRUGS (4)
  1. ZYPREXA [Suspect]
     Indication: SCHIZOPHRENIA
     Dosage: ORAL
     Route: 048
     Dates: start: 20050201
  2. ZYPREXA [Suspect]
     Indication: SCHIZOPHRENIA
     Dosage: ORAL
     Route: 048
     Dates: start: 20050701
  3. CLOZAPINE [Concomitant]
  4. AMISULPRIDE [Concomitant]

REACTIONS (2)
  - NEUTROPENIA [None]
  - WHITE BLOOD CELL COUNT DECREASED [None]
